FAERS Safety Report 9931045 (Version 1)
Quarter: 2014Q1

REPORT INFORMATION
  Report Type: Report from Study
  Country: US (occurrence: US)
  Receive Date: 20140227
  Receipt Date: 20140227
  Transmission Date: 20141002
  Serious: Yes (Hospitalization)
  Sender: FDA-Public Use
  Company Number: PHEH2014US003682

PATIENT
  Sex: Male

DRUGS (5)
  1. DIOVAN HCT [Suspect]
     Indication: HYPERTENSION
     Dosage: 1 DF (160 MG VALS/ 12.5 MG HYDR), UNK
  2. HYDROCHLOROTHIAZIDE,VALSARTAN [Suspect]
     Indication: HYPERTENSION
     Dosage: UNK UKN, UNK
  3. LOSARTAN [Suspect]
     Indication: HYPERTENSION
     Dosage: UNK UKN, UNK
  4. LISINOPRIL [Suspect]
     Indication: HYPERTENSION
     Dosage: UNK UKN, UNK
  5. MULTIVITAMIN [Concomitant]
     Dosage: 1 DF, A DAY

REACTIONS (1)
  - Malaise [Unknown]
